FAERS Safety Report 8588457-6 (Version None)
Quarter: 2012Q3

REPORT INFORMATION
  Report Type: 
  Country: None (occurrence: None)
  Receive Date: 20120813
  Receipt Date: 20120802
  Transmission Date: 20120928
  Serious: Yes (Other)
  Sender: FDA-Public Use
  Company Number: CA-JNJFOC-20120801663

PATIENT
  Sex: Male
  Weight: 56.5 kg

DRUGS (1)
  1. REMICADE [Suspect]
     Indication: COLITIS ULCERATIVE
     Route: 042
     Dates: start: 20120802

REACTIONS (11)
  - DYSPNOEA [None]
  - NAUSEA [None]
  - CHEST DISCOMFORT [None]
  - BLOOD PRESSURE INCREASED [None]
  - FLUSHING [None]
  - ANXIETY [None]
  - HYPERHIDROSIS [None]
  - RESTLESSNESS [None]
  - RESTLESS LEGS SYNDROME [None]
  - HEART RATE INCREASED [None]
  - INFUSION RELATED REACTION [None]
